FAERS Safety Report 13325830 (Version 2)
Quarter: 2017Q1

REPORT INFORMATION
  Report Type: Report from Study
  Country: US (occurrence: US)
  Receive Date: 20170310
  Receipt Date: 20170327
  Transmission Date: 20170428
  Serious: Yes (Hospitalization)
  Sender: FDA-Public Use
  Company Number: US-VIFOR (INTERNATIONAL) INC.-VIT-2017-02524

PATIENT
  Sex: Male

DRUGS (11)
  1. GEMFIBROZIL. [Concomitant]
     Active Substance: GEMFIBROZIL
  2. NIFEDICAL XL [Concomitant]
     Active Substance: NIFEDIPINE
  3. LABETALOL HYDROCHLORIDE. [Concomitant]
     Active Substance: LABETALOL HYDROCHLORIDE
  4. OMEPRAZOLE. [Concomitant]
     Active Substance: OMEPRAZOLE
  5. BENAZEPRIL HYDROCHLORIDE/AMLODIPINE BESYLATE [Concomitant]
  6. VELTASSA [Suspect]
     Active Substance: PATIROMER
     Indication: HYPERKALAEMIA
     Route: 048
     Dates: start: 20170202
  7. FENTANYL. [Concomitant]
     Active Substance: FENTANYL
  8. SODIUM BICARBONATE. [Concomitant]
     Active Substance: SODIUM BICARBONATE
  9. GABAPENTIN. [Concomitant]
     Active Substance: GABAPENTIN
  10. SIMVASTATIN. [Concomitant]
     Active Substance: SIMVASTATIN
  11. TAMSULOSIN HYDROCHLORIDE. [Concomitant]
     Active Substance: TAMSULOSIN HYDROCHLORIDE

REACTIONS (2)
  - Dialysis [Unknown]
  - Catheter placement [Unknown]

NARRATIVE: CASE EVENT DATE: 2017
